FAERS Safety Report 16414533 (Version 1)
Quarter: 2019Q2

REPORT INFORMATION
  Report Type: Spontaneous
  Country: US (occurrence: US)
  Receive Date: 20190503
  Receipt Date: 20190503
  Transmission Date: 20190711
  Serious: Yes (Hospitalization)
  Sender: FDA-Public Use
  Company Number: None

PATIENT
  Age: 63 Year
  Sex: Male
  Weight: 77.3 kg

DRUGS (1)
  1. XELODA [Suspect]
     Active Substance: CAPECITABINE
     Dates: end: 20190129

REACTIONS (9)
  - Electrocardiogram ST segment elevation [None]
  - Nausea [None]
  - Sinus tachycardia [None]
  - Vomiting [None]
  - Acute kidney injury [None]
  - Abdominal pain [None]
  - Postoperative ileus [None]
  - Dehydration [None]
  - Hyperbilirubinaemia [None]

NARRATIVE: CASE EVENT DATE: 20190412
